FAERS Safety Report 9227776 (Version 2)
Quarter: 2013Q2

REPORT INFORMATION
  Report Type: Spontaneous
  Country: JP (occurrence: JP)
  Receive Date: 20130412
  Receipt Date: 20130509
  Transmission Date: 20140414
  Serious: Yes (Hospitalization, Other)
  Sender: FDA-Public Use
  Company Number: JP-PFIZER INC-2013099372

PATIENT
  Age: 79 Year
  Sex: Male

DRUGS (12)
  1. LYRICA [Suspect]
     Indication: POST HERPETIC NEURALGIA
     Dosage: 75 MG, UNK
     Route: 048
     Dates: start: 20130111, end: 20130128
  2. LYRICA [Suspect]
     Dosage: 75 MG, 2X/DAY
     Route: 048
     Dates: start: 20130129, end: 20130327
  3. RISPERDAL [Concomitant]
     Dosage: UNK
     Route: 048
     Dates: start: 20120605
  4. MAGNESIUM OXIDE HEAVY [Concomitant]
     Indication: CONSTIPATION
     Dosage: UNK
     Route: 048
  5. TAKEPRON [Concomitant]
     Indication: GASTRIC ULCER
     Dosage: UNK
     Route: 048
  6. PLAVIX [Concomitant]
     Indication: CEREBRAL INFARCTION
     Dosage: UNK
  7. HOKUNALIN [Concomitant]
     Dosage: UNK
     Route: 062
  8. METHYCOBAL [Concomitant]
     Indication: NEURALGIA
     Dosage: UNK
     Route: 048
  9. LOXONIN [Concomitant]
     Indication: PAIN
     Dosage: UNK
     Route: 048
  10. MUCOSTA [Concomitant]
     Indication: ABDOMINAL PAIN UPPER
     Dosage: UNK
     Route: 048
  11. HARNAL [Concomitant]
     Indication: BENIGN PROSTATIC HYPERPLASIA
     Dosage: UNK
     Route: 048
  12. KEISIKAJUTUBUTO [Concomitant]
     Indication: NEURALGIA
     Dosage: UNK
     Route: 048

REACTIONS (4)
  - Dementia [Unknown]
  - Dizziness [Unknown]
  - Balance disorder [Unknown]
  - Drug ineffective [Unknown]
